FAERS Safety Report 6130255-7 (Version None)
Quarter: 2009Q1

REPORT INFORMATION
  Report Type: 
  Country: None (occurrence: None)
  Receive Date: 20090324
  Receipt Date: 20090316
  Transmission Date: 20090719
  Serious: Yes (Other)
  Sender: FDA-Public Use
  Company Number: PHHY2009BR09591

PATIENT
  Age: 67 Year
  Sex: Female
  Weight: 69 kg

DRUGS (3)
  1. DIOVAN HCT [Suspect]
     Indication: HYPERTENSION
     Dosage: ONE TABLET IN THE MORNING
     Route: 048
     Dates: start: 20080301
  2. AMLODIPINE BESYLATE [Concomitant]
     Indication: HYPERTENSION
     Dosage: ONE TABLET AT NIGHT
     Route: 048
     Dates: start: 20090201
  3. ATENOLOL [Concomitant]
     Indication: HYPERTENSION
     Dosage: ONE TABLET IN THE MORNING
     Dates: end: 20090216

REACTIONS (12)
  - BLOOD PRESSURE INCREASED [None]
  - CARDIAC DISORDER [None]
  - FACE INJURY [None]
  - FALL [None]
  - FEELING ABNORMAL [None]
  - HEAD INJURY [None]
  - HEART RATE INCREASED [None]
  - JOINT INJURY [None]
  - MALAISE [None]
  - PAIN [None]
  - SYNCOPE [None]
  - VISION BLURRED [None]
